FAERS Safety Report 8004363-X (Version None)
Quarter: 2011Q4

REPORT INFORMATION
  Report Type: 
  Country: None (occurrence: None)
  Receive Date: 20111223
  Receipt Date: 20111213
  Transmission Date: 20120403
  Serious: No
  Sender: FDA-Public Use
  Company Number: US-BIOGENIDEC-2011BI047027

PATIENT
  Age: 51 Year
  Sex: Female

DRUGS (2)
  1. AVONEX [Suspect]
     Indication: MULTIPLE SCLEROSIS
     Route: 030
     Dates: start: 20040202
  2. AVONEX [Suspect]
     Route: 030
     Dates: start: 19990129, end: 20030701

REACTIONS (5)
  - INTRAOCULAR PRESSURE INCREASED [None]
  - EYE DISORDER [None]
  - GLAUCOMA [None]
  - PERONEAL NERVE PALSY [None]
  - CATARACT SUBCAPSULAR [None]
